FAERS Safety Report 25438029 (Version 4)
Quarter: 2025Q4

REPORT INFORMATION
  Report Type: Spontaneous
  Country: JP (occurrence: JP)
  Receive Date: 20250616
  Receipt Date: 20251029
  Transmission Date: 20260118
  Serious: Yes (Other)
  Sender: AMGEN
  Company Number: JP-AMGEN-JPNSP2025055177

PATIENT
  Age: 75 Year
  Sex: Male

DRUGS (4)
  1. BLINCYTO [Suspect]
     Active Substance: BLINATUMOMAB
     Indication: B precursor type acute leukaemia
     Dosage: 28 MICROGRAM, QD, CENTRAL VENOUS (CV)
     Route: 040
     Dates: start: 20230303, end: 20250318
  2. BLINCYTO [Suspect]
     Active Substance: BLINATUMOMAB
     Dosage: 9 MICROGRAM, PERIPHERALLY INSERTED CENTRAL CATHETER (PICC)
     Route: 040
     Dates: start: 20250918, end: 202509
  3. BLINCYTO [Suspect]
     Active Substance: BLINATUMOMAB
     Dosage: UNK, PERIPHERALLY INSERTED CENTRAL CATHETER (PICC)
     Route: 040
     Dates: start: 20250922, end: 2025
  4. BLINCYTO [Suspect]
     Active Substance: BLINATUMOMAB
     Dosage: 28 MICROGRAM, PERIPHERALLY INSERTED CENTRAL CATHETER (PICC)
     Route: 040
     Dates: start: 2025, end: 20251009

REACTIONS (6)
  - Confusional state [Recovering/Resolving]
  - Disorientation [Recovering/Resolving]
  - Aphasia [Recovered/Resolved]
  - Central nervous system leukaemia [Not Recovered/Not Resolved]
  - Immune effector cell-associated neurotoxicity syndrome [Recovered/Resolved]
  - Nervous system disorder [Unknown]

NARRATIVE: CASE EVENT DATE: 20250318
